FAERS Safety Report 9269402 (Version 6)
Quarter: 2014Q1

REPORT INFORMATION
  Report Type: Spontaneous
  Country: US (occurrence: US)
  Receive Date: 20130503
  Receipt Date: 20140314
  Transmission Date: 20141002
  Serious: Yes (Hospitalization, Congenital Anomaly, Other)
  Sender: FDA-Public Use
  Company Number: US-JNJFOC-20130417392

PATIENT
  Sex: Female

DRUGS (4)
  1. TOPAMAX [Suspect]
     Indication: FOETAL EXPOSURE DURING PREGNANCY
     Route: 064
     Dates: start: 200306, end: 200308
  2. INSULIN [Suspect]
     Indication: FOETAL EXPOSURE DURING PREGNANCY
     Route: 064
  3. ZOLOFT [Suspect]
     Indication: FOETAL EXPOSURE DURING PREGNANCY
     Route: 064
  4. LABETALOL [Suspect]
     Indication: FOETAL EXPOSURE DURING PREGNANCY
     Route: 064

REACTIONS (13)
  - Paraplegia [Unknown]
  - Talipes [Unknown]
  - Spina bifida [Unknown]
  - Meningomyelocele [Unknown]
  - Hydrocephalus [Recovering/Resolving]
  - Talipes [Unknown]
  - Kyphosis congenital [Unknown]
  - Developmental delay [Unknown]
  - Atelectasis [Unknown]
  - Respiratory failure [Unknown]
  - Urinary incontinence [Unknown]
  - Developmental hip dysplasia [Unknown]
  - Neural tube defect [Unknown]
